FAERS Safety Report 23194988 (Version 1)
Quarter: 2023Q4

REPORT INFORMATION
  Report Type: Spontaneous
  Country: CN (occurrence: CN)
  Receive Date: 20231117
  Receipt Date: 20231117
  Transmission Date: 20240110
  Serious: Yes (Hospitalization, Other)
  Sender: FDA-Public Use
  Company Number: CN-ASTELLAS-2023US033884

PATIENT
  Age: 73 Year
  Sex: Male
  Weight: 47 kg

DRUGS (8)
  1. TACROLIMUS [Interacting]
     Active Substance: TACROLIMUS
     Indication: Prophylaxis against transplant rejection
     Route: 048
     Dates: end: 202208
  2. TACROLIMUS [Interacting]
     Active Substance: TACROLIMUS
     Dosage: 0.5 MG, ONCE DAILY
     Route: 048
     Dates: start: 202208
  3. TACROLIMUS [Interacting]
     Active Substance: TACROLIMUS
     Dosage: 0.5 MG, ONCE DAILY
     Route: 048
     Dates: start: 202208
  4. VORICONAZOLE [Interacting]
     Active Substance: VORICONAZOLE
     Indication: Bronchopulmonary aspergillosis
     Route: 048
     Dates: start: 202208, end: 202208
  5. VORICONAZOLE [Interacting]
     Active Substance: VORICONAZOLE
     Route: 048
     Dates: start: 202208, end: 202208
  6. VORICONAZOLE [Interacting]
     Active Substance: VORICONAZOLE
     Route: 048
     Dates: start: 202208
  7. VORICONAZOLE [Interacting]
     Active Substance: VORICONAZOLE
     Route: 048
     Dates: start: 2022
  8. PREDNISONE [Concomitant]
     Active Substance: PREDNISONE
     Indication: Prophylaxis against transplant rejection
     Route: 048

REACTIONS (5)
  - Toxicity to various agents [Recovered/Resolved]
  - Acute kidney injury [Recovered/Resolved]
  - Bronchopulmonary aspergillosis [Unknown]
  - Interstitial lung disease [Unknown]
  - Drug interaction [Unknown]

NARRATIVE: CASE EVENT DATE: 20220801
